FAERS Safety Report 10889229 (Version 2)
Quarter: 2015Q2

REPORT INFORMATION
  Report Type: Spontaneous
  Country: SE (occurrence: SE)
  Receive Date: 20150305
  Receipt Date: 20150422
  Transmission Date: 20150821
  Serious: Yes (Other)
  Sender: FDA-Public Use
  Company Number: SE-MYLANLABS-2015M1005718

PATIENT

DRUGS (1)
  1. ALENDRONAT [Suspect]
     Active Substance: ALENDRONATE SODIUM
     Indication: RHEUMATIC DISORDER
     Dosage: UNK

REACTIONS (3)
  - Osteonecrosis [Unknown]
  - Periodontitis [Unknown]
  - Toothache [Unknown]
